FAERS Safety Report 9208852 (Version 2)
Quarter: 2013Q2

REPORT INFORMATION
  Report Type: Spontaneous
  Country: AU (occurrence: AU)
  Receive Date: 20130404
  Receipt Date: 20130409
  Transmission Date: 20140414
  Serious: No
  Sender: FDA-Public Use
  Company Number: AU-JNJFOC-20130317551

PATIENT
  Sex: Male

DRUGS (1)
  1. DUROGESIC [Suspect]
     Indication: ANALGESIC THERAPY
     Route: 062

REACTIONS (4)
  - Dermatitis contact [Unknown]
  - Application site urticaria [Unknown]
  - Drug administered at inappropriate site [Unknown]
  - Drug ineffective [Unknown]
